FAERS Safety Report 4393865-3 (Version None)
Quarter: 2004Q3

REPORT INFORMATION
  Report Type: 
  Country: None (occurrence: None)
  Receive Date: 20040701
  Receipt Date: 20040618
  Transmission Date: 20050211
  Serious: Yes (Death)
  Sender: FDA-Public Use
  Company Number: US-JNJFOC-20040605481

PATIENT
  Age: 70 Year
  Sex: Male

DRUGS (5)
  1. REMICADE [Suspect]
     Indication: RHEUMATOID ARTHRITIS
     Dates: start: 20010401
  2. CORDARONE [Concomitant]
  3. LESCOL [Concomitant]
  4. COUMADIN [Concomitant]
  5. ANTI-HISTAMINE TAB [Concomitant]

REACTIONS (1)
  - PNEUMONIA STREPTOCOCCAL [None]
